FAERS Safety Report 19213993 (Version 2)
Quarter: 2021Q2

REPORT INFORMATION
  Report Type: Spontaneous
  Country: US (occurrence: US)
  Receive Date: 20210504
  Receipt Date: 20210527
  Transmission Date: 20210717
  Serious: Yes (Other)
  Sender: FDA-Public Use
  Company Number: US-PFIZER INC-2021239479

PATIENT
  Age: 80 Year
  Sex: Female
  Weight: 65.76 kg

DRUGS (1)
  1. XANAX [Suspect]
     Active Substance: ALPRAZOLAM
     Indication: ANXIETY
     Dosage: 1 DF, DAILY BEFORE BED

REACTIONS (2)
  - Renal cancer [Unknown]
  - Intentional product misuse [Unknown]
